FAERS Safety Report 7178546-5 (Version None)
Quarter: 2010Q4

REPORT INFORMATION
  Report Type: 
  Country: None (occurrence: None)
  Receive Date: 20101221
  Receipt Date: 20101213
  Transmission Date: 20110411
  Serious: Yes (Hospitalization)
  Sender: FDA-Public Use
  Company Number: US-BIOGENIDEC-2010BI040272

PATIENT
  Age: 40 Year
  Sex: Female

DRUGS (15)
  1. TYSABRI [Suspect]
     Indication: MULTIPLE SCLEROSIS
     Route: 042
     Dates: start: 20080610
  2. MORPHINE [Concomitant]
     Route: 048
  3. TRIHEXYPHENIDYL HCL [Concomitant]
     Route: 048
  4. VITAMIN B-12 [Concomitant]
  5. MULTI-VITAMIN [Concomitant]
     Route: 048
  6. SENNA [Concomitant]
     Route: 048
  7. MILK OF MAGNESIA [Concomitant]
  8. BISACODYL [Concomitant]
     Route: 048
  9. PAXIL [Concomitant]
     Route: 048
  10. DETROL [Concomitant]
     Route: 048
  11. MICONAZOLE CREAM [Concomitant]
  12. VICODIN [Concomitant]
     Route: 048
  13. TYLENOL (CAPLET) [Concomitant]
     Route: 048
  14. BISACODYL [Concomitant]
     Route: 054
  15. MAALOX [Concomitant]
     Route: 048

REACTIONS (6)
  - ABDOMINAL WALL ABSCESS [None]
  - ABSCESS LIMB [None]
  - ARTHRITIS BACTERIAL [None]
  - HYPOKALAEMIA [None]
  - HYPOMAGNESAEMIA [None]
  - UROSEPSIS [None]
